FAERS Safety Report 6906029-3 (Version None)
Quarter: 2010Q3

REPORT INFORMATION
  Report Type: 
  Country: None (occurrence: None)
  Receive Date: 20100804
  Receipt Date: 20100723
  Transmission Date: 20110219
  Serious: Yes (Hospitalization, Other)
  Sender: FDA-Public Use
  Company Number: PHHY2010FR49036

PATIENT
  Sex: Female

DRUGS (17)
  1. NEORAL [Suspect]
     Indication: AUTOIMMUNE HEPATITIS
     Dosage: 75 MG, BID
     Route: 048
     Dates: start: 19970701, end: 19980901
  2. NEORAL [Suspect]
     Dosage: 75 MG, BID
     Route: 048
     Dates: start: 20100224
  3. BACTRIM [Suspect]
     Indication: AUTOIMMUNE HEPATITIS
     Dosage: 400/80 MG, QD
     Route: 048
     Dates: start: 20100224, end: 20100301
  4. NOVONORM [Suspect]
     Indication: TYPE 2 DIABETES MELLITUS
     Dosage: THREE TIMES DAILY
     Route: 048
     Dates: start: 20100101
  5. IDEOS [Suspect]
     Indication: OSTEOPOROSIS
     Dosage: 500 MG/400 IU
     Route: 048
     Dates: start: 20100201
  6. CORTANCYL [Concomitant]
     Indication: AUTOIMMUNE HEPATITIS
     Dosage: 60 MG DAILY
     Dates: start: 19941001
  7. CORTANCYL [Concomitant]
     Dosage: 7 MG DAILY
     Dates: start: 19990601
  8. CORTANCYL [Concomitant]
     Dosage: 1 MG DAILY
     Dates: start: 20080401
  9. CORTANCYL [Concomitant]
     Dosage: 60 MG DAILY
     Dates: start: 20100101
  10. CORTANCYL [Concomitant]
     Dosage: 80 MG DAILY
     Dates: start: 20100211, end: 20100301
  11. CORTANCYL [Concomitant]
     Dosage: 60 MG DAILY
     Dates: start: 20100302, end: 20100309
  12. CORTANCYL [Concomitant]
     Dosage: 40 MG DAILY
  13. CORTANCYL [Concomitant]
     Dosage: 25 MG DAILY
  14. IMUREL [Concomitant]
     Indication: AUTOIMMUNE HEPATITIS
     Dosage: 50 MG DAILY
     Dates: start: 19990601
  15. IMUREL [Concomitant]
     Dosage: 100 MG DAILY
  16. IMUREL [Concomitant]
     Dosage: 150 MG DAILY
     Dates: start: 20080401, end: 20100224
  17. LEVONORGESTREL AND ETHINYL ESTRADIOL [Concomitant]

REACTIONS (16)
  - ALANINE AMINOTRANSFERASE INCREASED [None]
  - ASPARTATE AMINOTRANSFERASE INCREASED [None]
  - AUTOIMMUNE HEPATITIS [None]
  - BILIRUBIN CONJUGATED INCREASED [None]
  - BLOOD ALKALINE PHOSPHATASE INCREASED [None]
  - BLOOD BILIRUBIN INCREASED [None]
  - CHOLANGITIS [None]
  - CHOLESTASIS [None]
  - CONDITION AGGRAVATED [None]
  - CYTOLYTIC HEPATITIS [None]
  - GAMMA-GLUTAMYLTRANSFERASE INCREASED [None]
  - GENERAL PHYSICAL HEALTH DETERIORATION [None]
  - HEPATIC ENZYME INCREASED [None]
  - JAUNDICE CHOLESTATIC [None]
  - TYPE 2 DIABETES MELLITUS [None]
  - WEIGHT DECREASED [None]
